FAERS Safety Report 19389892 (Version 1)
Quarter: 2021Q2

REPORT INFORMATION
  Report Type: Other
  Country: US (occurrence: US)
  Receive Date: 20210608
  Receipt Date: 20210608
  Transmission Date: 20210717
  Serious: Yes (Other)
  Sender: FDA-Public Use
  Company Number: US-ROCHE-2844138

PATIENT
  Sex: Female

DRUGS (1)
  1. OCREVUS [Suspect]
     Active Substance: OCRELIZUMAB
     Indication: RELAPSING MULTIPLE SCLEROSIS
     Dosage: DATE OF TREATMENT: 29/MAY/2020?PRESCRIBED WITH INFUSE 300 MG, DAY 1 AND 15 THEN 600 MG EVERY 6 MONTH
     Route: 065
     Dates: start: 20200512

REACTIONS (1)
  - Pneumonia [Recovered/Resolved]
